FAERS Safety Report 24149342 (Version 1)
Quarter: 2024Q3

REPORT INFORMATION
  Report Type: Spontaneous
  Country: TW (occurrence: TW)
  Receive Date: 20240730
  Receipt Date: 20240730
  Transmission Date: 20241017
  Serious: Yes (Hospitalization, Other)
  Sender: ENDO
  Company Number: TW-ENDO USA, INC.-2024-002983

PATIENT
  Age: 58 Year
  Sex: Male

DRUGS (1)
  1. BACLOFEN [Suspect]
     Active Substance: BACLOFEN
     Indication: Hiccups
     Dosage: 5 MILLIGRAM, BID (12 HOURS INTERVALS)
     Route: 048

REACTIONS (2)
  - Neurotoxicity [Recovered/Resolved]
  - Off label use [Recovered/Resolved]
